FAERS Safety Report 8445758-X (Version None)
Quarter: 2012Q2

REPORT INFORMATION
  Report Type: 
  Country: None (occurrence: None)
  Receive Date: 20120618
  Receipt Date: 20120611
  Transmission Date: 20120825
  Serious: Yes (Hospitalization)
  Sender: FDA-Public Use
  Company Number: JP-GLAXOSMITHKLINE-B0808363A

PATIENT
  Age: 54 Year
  Sex: Male

DRUGS (4)
  1. MIRTAZAPINE [Concomitant]
     Route: 048
  2. LAMICTAL [Suspect]
     Indication: BIPOLAR II DISORDER
     Route: 048
  3. LAMICTAL [Suspect]
     Dosage: 200MG PER DAY
     Route: 048
  4. LITHIUM CARBONATE [Concomitant]
     Route: 048

REACTIONS (2)
  - WHITE BLOOD CELL COUNT DECREASED [None]
  - INTESTINAL OBSTRUCTION [None]
